FAERS Safety Report 7798956-2 (Version None)
Quarter: 2011Q4

REPORT INFORMATION
  Report Type: 
  Country: None (occurrence: None)
  Receive Date: 20111006
  Receipt Date: 20110818
  Transmission Date: 20120403
  Serious: No
  Sender: FDA-Public Use
  Company Number: US-ASTRAZENECA-2011SE49594

PATIENT
  Age: 52 Year
  Sex: Male
  Weight: 64 kg

DRUGS (14)
  1. FLOVENT [Concomitant]
     Indication: CHRONIC OBSTRUCTIVE PULMONARY DISEASE
     Route: 055
     Dates: start: 20090101
  2. LISINOPRIL [Concomitant]
     Indication: HYPERTENSION
     Dosage: 20/25 MG BID
     Route: 048
     Dates: start: 20100101
  3. VENTOLIN HFA [Concomitant]
     Indication: CHRONIC OBSTRUCTIVE PULMONARY DISEASE
     Dosage: 90 MG PRN
     Route: 055
     Dates: start: 20090101
  4. VITAMIN B-12 [Concomitant]
     Dosage: ONCE
     Route: 048
     Dates: start: 20100101
  5. FISH OIL [Concomitant]
     Dosage: AT NIGHT
     Route: 048
     Dates: start: 20100101
  6. ZOMIG [Suspect]
     Indication: MIGRAINE
     Dosage: 5 MG PRN
     Route: 048
     Dates: start: 20110101
  7. ZOMIG [Suspect]
     Indication: HEADACHE
     Dosage: 5 MG PRN
     Route: 048
     Dates: start: 20110101
  8. FLOMIX [Concomitant]
     Indication: DYSPEPSIA
     Route: 048
     Dates: start: 20100101
  9. COMBIVENT [Concomitant]
     Indication: CHRONIC OBSTRUCTIVE PULMONARY DISEASE
     Dosage: TWO TIMES A DAY
     Route: 055
     Dates: start: 20090101
  10. ALBUTEROL [Concomitant]
     Indication: CHRONIC OBSTRUCTIVE PULMONARY DISEASE
     Dosage: 0.83 % PRN
     Route: 055
     Dates: start: 20090101
  11. NEXIUM [Suspect]
     Indication: GASTROOESOPHAGEAL REFLUX DISEASE
     Route: 048
     Dates: start: 20100101
  12. CLOMAZEPAM [Concomitant]
     Indication: ANXIETY
     Dosage: AT NIGHT
     Route: 048
     Dates: start: 20100101
  13. IPRATROPIUM BROMIDE [Concomitant]
     Indication: CHRONIC OBSTRUCTIVE PULMONARY DISEASE
     Dosage: 5 MG PRN
     Route: 055
     Dates: start: 20090101
  14. SEROQUEL [Suspect]
     Indication: INSOMNIA
     Route: 048
     Dates: start: 20110501

REACTIONS (4)
  - THERAPEUTIC RESPONSE UNEXPECTED [None]
  - INSOMNIA [None]
  - DRUG DOSE OMISSION [None]
  - OFF LABEL USE [None]
